FAERS Safety Report 21404498 (Version 3)
Quarter: 2022Q4

REPORT INFORMATION
  Report Type: Spontaneous
  Country: US (occurrence: US)
  Receive Date: 20221003
  Receipt Date: 20221220
  Transmission Date: 20230112
  Serious: No
  Sender: FDA-Public Use
  Company Number: US-BRISTOL-MYERS SQUIBB COMPANY-2022-115003

PATIENT
  Age: 85 Year
  Sex: Female

DRUGS (1)
  1. POMALYST [Suspect]
     Active Substance: POMALIDOMIDE
     Indication: Product used for unknown indication
     Dosage: FRE: OTHER
     Route: 048
     Dates: start: 202008

REACTIONS (4)
  - Vaginal infection [Unknown]
  - Chest pain [Unknown]
  - Dehydration [Unknown]
  - Stress [Unknown]

NARRATIVE: CASE EVENT DATE: 20220920
